FAERS Safety Report 20051505 (Version 23)
Quarter: 2024Q2

REPORT INFORMATION
  Report Type: Spontaneous
  Country: CA (occurrence: CA)
  Receive Date: 20211110
  Receipt Date: 20240611
  Transmission Date: 20240716
  Serious: Yes (Other)
  Sender: FDA-Public Use
  Company Number: CA-CELLTRION INC.-2021CA012965

PATIENT

DRUGS (28)
  1. INFLECTRA [Suspect]
     Active Substance: INFLIXIMAB-DYYB
     Indication: Crohn^s disease
     Dosage: 300 MG, 0,2,6 WEEKS, THEN EVERY 8 WEEKS
     Route: 042
     Dates: start: 20210818, end: 20210829
  2. INFLECTRA [Suspect]
     Active Substance: INFLIXIMAB-DYYB
     Dosage: 300 MG, EVERY 4 WEEK
     Route: 042
     Dates: start: 20210818
  3. INFLECTRA [Suspect]
     Active Substance: INFLIXIMAB-DYYB
     Dosage: 300 MG, 0,2,6 WEEKS, THEN EVERY 8 WEEKS
     Route: 042
     Dates: start: 20210829
  4. INFLECTRA [Suspect]
     Active Substance: INFLIXIMAB-DYYB
     Dosage: 300 MG, 0,2,6 WEEKS, THEN EVERY 8 WEEKS
     Route: 042
     Dates: start: 20210829
  5. INFLECTRA [Suspect]
     Active Substance: INFLIXIMAB-DYYB
     Dosage: 300 MG, 0,2,6 WEEKS, THEN EVERY 8 WEEKS
     Route: 042
     Dates: start: 20210913
  6. INFLECTRA [Suspect]
     Active Substance: INFLIXIMAB-DYYB
     Dosage: 300 MG, AT WEEK 6 AND THEN EVERY 4 WEEKS
     Route: 042
     Dates: start: 20210913, end: 20220410
  7. INFLECTRA [Suspect]
     Active Substance: INFLIXIMAB-DYYB
     Dosage: 300 MG, 0,2,6 WEEKS, THEN EVERY 8 WEEKS
     Route: 042
     Dates: start: 20211029
  8. INFLECTRA [Suspect]
     Active Substance: INFLIXIMAB-DYYB
     Dosage: 300 MG, 0,2,6 WEEKS, THEN EVERY 8 WEEKS
     Route: 042
     Dates: start: 20211126
  9. INFLECTRA [Suspect]
     Active Substance: INFLIXIMAB-DYYB
     Dosage: 300 MG, 0,2,6 WEEKS, THEN EVERY 8 WEEKS
     Route: 042
     Dates: start: 20220105
  10. INFLECTRA [Suspect]
     Active Substance: INFLIXIMAB-DYYB
     Dosage: 300 MG, WEEK 0, 2, 6 THEN EVERY 4 WEEKS REINDUCTION
     Route: 042
     Dates: start: 20220522
  11. INFLECTRA [Suspect]
     Active Substance: INFLIXIMAB-DYYB
     Dosage: 300 MG, WEEK 0, 2, 6 THEN EVERY 4 WEEKS (REINDUCTION)
     Route: 042
     Dates: start: 20220620
  12. INFLECTRA [Suspect]
     Active Substance: INFLIXIMAB-DYYB
     Dosage: 300 MG, WEEK 0, 2, 6 THEN EVERY 4 WEEKS (REINDUCTION)
     Route: 042
     Dates: start: 20221216
  13. INFLECTRA [Suspect]
     Active Substance: INFLIXIMAB-DYYB
     Dosage: 300 MG, WEEK 0, 2, 6 THEN EVERY 4 WEEKS (REINDUCTION)
     Route: 042
     Dates: start: 20230206, end: 202302
  14. INFLECTRA [Suspect]
     Active Substance: INFLIXIMAB-DYYB
     Dosage: 300 MG, EVERY 4 WEEKS
     Route: 042
     Dates: start: 20230314
  15. INFLECTRA [Suspect]
     Active Substance: INFLIXIMAB-DYYB
     Dosage: 300 MG, EVERY 4 WEEKS
     Route: 042
     Dates: start: 20230427
  16. INFLECTRA [Suspect]
     Active Substance: INFLIXIMAB-DYYB
     Dosage: 300 MG, EVERY 4 WEEKS
     Route: 042
     Dates: start: 20230427
  17. INFLECTRA [Suspect]
     Active Substance: INFLIXIMAB-DYYB
     Dosage: 300 MG, EVERY 4 WEEKS (7 WEEKS AND 3 DAYS AFTER LAST INFUSION)
     Route: 042
     Dates: start: 20230618
  18. INFLECTRA [Suspect]
     Active Substance: INFLIXIMAB-DYYB
     Dosage: 300 MG, AFTER 4 WEEKS
     Route: 042
     Dates: start: 20230718
  19. INFLECTRA [Suspect]
     Active Substance: INFLIXIMAB-DYYB
     Dosage: 300 MG, EVERY 4 WEEKS (6 WEEKS AND 4 DAYS)
     Route: 042
     Dates: start: 20230903
  20. INFLECTRA [Suspect]
     Active Substance: INFLIXIMAB-DYYB
     Dosage: 300 MG, WEEK 0, 2, 6 THEN EVERY 4 WEEKS
     Route: 042
     Dates: start: 20231001
  21. INFLECTRA [Suspect]
     Active Substance: INFLIXIMAB-DYYB
     Dosage: 300 MG, WEEK 0, 2, 6 THEN EVERY 4 WEEKS
     Route: 042
     Dates: start: 20231113
  22. INFLECTRA [Suspect]
     Active Substance: INFLIXIMAB-DYYB
     Dosage: 300 MG, WEEK 0, 2, 6 THEN EVERY 4 WEEKS(9 WEEKS AND 2 DAYS)
     Route: 042
     Dates: start: 20240117
  23. INFLECTRA [Suspect]
     Active Substance: INFLIXIMAB-DYYB
     Dosage: 300 MG, WEEK 0, 2, 6 THEN EVERY 4 WEEKS REINDUCTION
     Route: 042
     Dates: start: 20240318
  24. ACETAMINOPHEN [Concomitant]
     Active Substance: ACETAMINOPHEN
     Dosage: UNK
     Dates: start: 20211126, end: 20211126
  25. ASACOL [Concomitant]
     Active Substance: MESALAMINE
     Dosage: UNK
  26. DIMENHYDRINATE [Concomitant]
     Active Substance: DIMENHYDRINATE
     Indication: Premedication
     Dosage: UNK
     Dates: start: 20211126, end: 20211126
  27. DIPHENHYDRAMINE [Concomitant]
     Active Substance: DIPHENHYDRAMINE
     Indication: Premedication
     Dosage: UNK
     Dates: start: 20211126, end: 20211126
  28. PREDNISONE [Concomitant]
     Active Substance: PREDNISONE
     Dosage: UNK, NOW ON A TAPER

REACTIONS (23)
  - Colitis [Unknown]
  - Condition aggravated [Unknown]
  - Faecal calprotectin increased [Recovering/Resolving]
  - Nausea [Unknown]
  - Blood pressure fluctuation [Recovered/Resolved]
  - Loss of personal independence in daily activities [Unknown]
  - Therapeutic product effect incomplete [Unknown]
  - Injury [Not Recovered/Not Resolved]
  - Movement disorder [Not Recovered/Not Resolved]
  - Joint injury [Unknown]
  - Limb injury [Unknown]
  - Mucosal disorder [Unknown]
  - Contusion [Unknown]
  - Blood pressure systolic increased [Not Recovered/Not Resolved]
  - Blood pressure diastolic decreased [Not Recovered/Not Resolved]
  - Infection [Unknown]
  - Heart rate decreased [Recovered/Resolved]
  - Urinary tract infection [Unknown]
  - Heart rate decreased [Recovering/Resolving]
  - Drug ineffective [Unknown]
  - Inappropriate schedule of product administration [Unknown]
  - Off label use [Unknown]
  - Off label use [Unknown]

NARRATIVE: CASE EVENT DATE: 20210818
